FAERS Safety Report 11202723 (Version 1)
Quarter: 2015Q2

REPORT INFORMATION
  Report Type: Spontaneous
  Country: US (occurrence: None)
  Receive Date: 20150618
  Receipt Date: 20150618
  Transmission Date: 20150821
  Serious: Yes (Hospitalization)
  Sender: FDA-Public Use
  Company Number: None

PATIENT
  Age: 56 Year
  Sex: Male

DRUGS (1)
  1. IODIXANOL [Suspect]
     Active Substance: IODIXANOL
     Indication: ANGIOGRAM
     Route: 042
     Dates: start: 20120712, end: 20120712

REACTIONS (3)
  - Fluid overload [None]
  - Acute kidney injury [None]
  - Renal tubular necrosis [None]

NARRATIVE: CASE EVENT DATE: 20120712
